FAERS Safety Report 25620982 (Version 1)
Quarter: 2025Q3

REPORT INFORMATION
  Report Type: Spontaneous
  Country: US (occurrence: US)
  Receive Date: 20250730
  Receipt Date: 20250730
  Transmission Date: 20251020
  Serious: Yes (Other)
  Sender: AMNEAL
  Company Number: US-AMNEAL-2025-AMRX-00600

PATIENT
  Age: 58 Year
  Sex: Male
  Weight: 89.342 kg

DRUGS (2)
  1. BACLOFEN [Suspect]
     Active Substance: BACLOFEN
     Indication: Product used for unknown indication
     Route: 037
  2. BACLOFEN [Suspect]
     Active Substance: BACLOFEN
     Dosage: 899.61564 MCG PER DAY
     Route: 037

REACTIONS (2)
  - Implant site infection [Recovered/Resolved]
  - Device connection issue [Unknown]

NARRATIVE: CASE EVENT DATE: 20250213
